FAERS Safety Report 14503042 (Version 1)
Quarter: 2018Q1

REPORT INFORMATION
  Report Type: Spontaneous
  Country: US (occurrence: US)
  Receive Date: 20180207
  Receipt Date: 20180207
  Transmission Date: 20180509
  Serious: Yes (Hospitalization)
  Sender: FDA-Public Use
  Company Number: None

PATIENT
  Age: 32 Year
  Sex: Female

DRUGS (1)
  1. SIMPONI [Suspect]
     Active Substance: GOLIMUMAB
     Indication: RHEUMATOID ARTHRITIS
     Dosage: 1 INJECTION 50MG EVERY 4 WEEKS SUBCUTANEOUSLY
     Route: 058
     Dates: start: 20170822

REACTIONS (1)
  - Surgery [None]

NARRATIVE: CASE EVENT DATE: 201712
